FAERS Safety Report 8542455-7 (Version None)
Quarter: 2012Q3

REPORT INFORMATION
  Report Type: 
  Country: None (occurrence: None)
  Receive Date: 20120726
  Receipt Date: 20110720
  Transmission Date: 20120928
  Serious: Yes (Hospitalization)
  Sender: FDA-Public Use
  Company Number: US-ASTRAZENECA-2008UW08687

PATIENT
  Age: 6479 Day
  Sex: Female
  Weight: 61.2 kg

DRUGS (10)
  1. SEROQUEL [Suspect]
     Indication: BIPOLAR DISORDER
     Dosage: 25-600 MG
     Route: 048
     Dates: start: 20050727
  2. DEPAKOTE [Concomitant]
     Dates: start: 20061218
  3. ZOLOFT [Concomitant]
     Dates: start: 20060101
  4. ABILIFY [Concomitant]
     Dates: start: 20070101
  5. SEROQUEL [Suspect]
     Dosage: VARIOUS (INCLUDING BUT NOT LIMITED TO 25 MG, 50 MG, 75 MG, 100 MG, 300 MG)
     Route: 048
     Dates: start: 20050901, end: 20071201
  6. PROZAC [Concomitant]
     Dates: start: 20050101
  7. COLACE [Concomitant]
     Route: 048
     Dates: start: 20061218
  8. SEROQUEL [Suspect]
     Indication: DEPRESSION
     Dosage: 25-600 MG
     Route: 048
     Dates: start: 20050727
  9. SEROQUEL [Suspect]
     Dosage: VARIOUS (INCLUDING BUT NOT LIMITED TO 25 MG, 50 MG, 75 MG, 100 MG, 300 MG)
     Route: 048
     Dates: start: 20050901, end: 20071201
  10. PROZAC [Concomitant]
     Route: 048
     Dates: start: 20050727

REACTIONS (2)
  - TYPE 2 DIABETES MELLITUS [None]
  - TYPE 1 DIABETES MELLITUS [None]
